FAERS Safety Report 8972406 (Version 4)
Quarter: 2013Q1

REPORT INFORMATION
  Report Type: Spontaneous
  Country: US (occurrence: US)
  Receive Date: 20121218
  Receipt Date: 20130116
  Transmission Date: 20140127
  Serious: Yes (Death)
  Sender: FDA-Public Use
  Company Number: US-JNJFOC-20121207900

PATIENT
  Age: 64 Year
  Sex: Female

DRUGS (10)
  1. XARELTO [Suspect]
     Indication: ATRIAL FIBRILLATION
     Route: 048
     Dates: start: 20120719
  2. NACL +KCL [Concomitant]
     Indication: PRODUCT USED FOR UNKNOWN INDICATION
     Dosage: 0.9% SODIUM CHLORIDE WITH 20MEQ/L INFUSION
     Route: 042
  3. LOPRESSOR [Concomitant]
     Route: 048
  4. CARDENE [Concomitant]
     Dosage: 5-15MG/HOUR
     Route: 042
  5. HUMALOG [Concomitant]
     Route: 058
  6. ZOFRAN [Concomitant]
     Route: 042
  7. NORMODYNE [Concomitant]
     Route: 042
  8. ATIVAN [Concomitant]
     Route: 042
  9. ZEMURON [Concomitant]
     Dosage: 0.6MG/KG
     Route: 042
  10. TRANDATE [Concomitant]
     Route: 042

REACTIONS (2)
  - Haemorrhage intracranial [Fatal]
  - Malignant hypertension [Unknown]
